FAERS Safety Report 5725202-3 (Version None)
Quarter: 2008Q2

REPORT INFORMATION
  Report Type: 
  Country: None (occurrence: None)
  Receive Date: 20080501
  Receipt Date: 20080425
  Transmission Date: 20081010
  Serious: Yes (Other)
  Sender: FDA-Public Use
  Company Number: B0359437A

PATIENT
  Sex: Male

DRUGS (5)
  1. SEROXAT [Suspect]
     Route: 065
     Dates: start: 20010521
  2. PROPRANOLOL [Concomitant]
  3. DIAZEPAM [Concomitant]
  4. AMITRIPTLINE HCL [Concomitant]
  5. LOFEPRAMINE [Concomitant]

REACTIONS (12)
  - AGITATION [None]
  - DRUG WITHDRAWAL SYNDROME [None]
  - EPISTAXIS [None]
  - HOMICIDAL IDEATION [None]
  - MOOD SWINGS [None]
  - NIGHTMARE [None]
  - OVERDOSE [None]
  - PAIN [None]
  - PARAESTHESIA [None]
  - SUICIDAL IDEATION [None]
  - SUICIDE ATTEMPT [None]
  - WEIGHT INCREASED [None]
